FAERS Safety Report 23744558 (Version 2)
Quarter: 2024Q2

REPORT INFORMATION
  Report Type: Spontaneous
  Country: US (occurrence: US)
  Receive Date: 20240415
  Receipt Date: 20240419
  Transmission Date: 20240716
  Serious: No
  Sender: FDA-Public Use
  Company Number: US-SANOFI-02009740

PATIENT
  Age: 63 Year
  Sex: Female

DRUGS (1)
  1. TOUJEO MAX [Suspect]
     Active Substance: INSULIN GLARGINE
     Indication: Type 2 diabetes mellitus
     Dosage: 76 IU, QD
     Route: 065
     Dates: start: 2022

REACTIONS (2)
  - Blood glucose increased [Unknown]
  - Device issue [Unknown]

NARRATIVE: CASE EVENT DATE: 20240401
